FAERS Safety Report 9224230 (Version 1)
Quarter: 2013Q1

REPORT INFORMATION
  Report Type: Spontaneous
  Country: US (occurrence: None)
  Receive Date: 20120907
  Receipt Date: 20120907
  Transmission Date: 20140127
  Serious: Yes (Other)
  Sender: FDA-Public Use
  Company Number: TH-2012-00437

PATIENT
  Sex: Female

DRUGS (1)
  1. EGRIFTA [Suspect]
     Indication: LIPODYSTROPHY ACQUIRED
     Dates: start: 20120611

REACTIONS (5)
  - Anaphylactic reaction [None]
  - Cardiac disorder [None]
  - Dyspnoea [None]
  - Headache [None]
  - Palpitations [None]
